FAERS Safety Report 9204159 (Version 1)
Quarter: 2013Q1

REPORT INFORMATION
  Report Type: Spontaneous
  Country: US (occurrence: None)
  Receive Date: 20120709
  Receipt Date: 20120709
  Transmission Date: 20140127
  Serious: Yes (Other)
  Sender: FDA-Public Use
  Company Number: PHEH2011US02559

PATIENT
  Age: 61 Year
  Sex: Female

DRUGS (1)
  1. GLEEVEC (IMATINIB) UNKNOWN [Suspect]

REACTIONS (4)
  - Neoplasm malignant [None]
  - Gastrointestinal stromal tumour [None]
  - Drug ineffective [None]
  - Disease progression [None]
